FAERS Safety Report 5081717-5 (Version None)
Quarter: 2006Q3

REPORT INFORMATION
  Report Type: 
  Country: None (occurrence: None)
  Receive Date: 20060816
  Receipt Date: 20060808
  Transmission Date: 20061208
  Serious: Yes (Life-Threatening)
  Sender: FDA-Public Use
  Company Number: US-JNJFOC-20060802443

PATIENT
  Sex: Female
  Weight: 56.7 kg

DRUGS (11)
  1. REMICADE [Suspect]
     Route: 042
  2. REMICADE [Suspect]
     Indication: RHEUMATOID ARTHRITIS
     Dosage: 4 INFUSIONS ON UNKNOWN DATES
     Route: 042
  3. PRILOSEC [Concomitant]
  4. FOLIC ACID [Concomitant]
  5. CALCIUM AND VITAMIN D [Concomitant]
  6. MACROBID [Concomitant]
  7. METHOTREXATE [Concomitant]
  8. ESTROGENS SOL/INJ [Concomitant]
     Route: 067
  9. ASPIRIN [Concomitant]
  10. CLARITIN [Concomitant]
     Indication: PREMEDICATION
  11. EXTRA STRENGTH TYLENOL [Concomitant]
     Indication: PREMEDICATION

REACTIONS (1)
  - GASTRIC CANCER [None]
